FAERS Safety Report 7395461-2 (Version None)
Quarter: 2011Q2

REPORT INFORMATION
  Report Type: 
  Country: None (occurrence: None)
  Receive Date: 20110405
  Receipt Date: 20110330
  Transmission Date: 20111010
  Serious: Yes (Hospitalization, Other)
  Sender: FDA-Public Use
  Company Number: DE-ABBOTT-11P-062-0715741-00

PATIENT
  Sex: Male

DRUGS (3)
  1. METHOTREXAT [Concomitant]
     Indication: RHEUMATOID ARTHRITIS
  2. HUMIRA [Suspect]
     Indication: INTRAOCULAR PRESSURE INCREASED
  3. HUMIRA [Suspect]
     Indication: RHEUMATOID ARTHRITIS
     Route: 058
     Dates: start: 20110211

REACTIONS (2)
  - INTRAOCULAR PRESSURE INCREASED [None]
  - ABDOMINAL PAIN [None]
